FAERS Safety Report 12170761 (Version 1)
Quarter: 2016Q1

REPORT INFORMATION
  Report Type: Spontaneous
  Country: US (occurrence: None)
  Receive Date: 20160310
  Receipt Date: 20160310
  Transmission Date: 20160526
  Serious: Yes (Hospitalization, Other)
  Sender: FDA-Public Use
  Company Number: None

PATIENT
  Age: 41 Year
  Sex: Female
  Weight: 90.72 kg

DRUGS (3)
  1. XANAX [Concomitant]
     Active Substance: ALPRAZOLAM
  2. NEUPRO [Suspect]
     Active Substance: ROTIGOTINE
     Indication: RESTLESS LEGS SYNDROME
     Dosage: 1 PATCH EVERY 24HRS APPLIED AS MEDICATED PATCH TO SKIN
     Dates: start: 20130101, end: 20160309
  3. XANAX [Concomitant]
     Active Substance: ALPRAZOLAM

REACTIONS (7)
  - Abnormal behaviour [None]
  - Gambling [None]
  - Theft [None]
  - Drug effect incomplete [None]
  - Feeling abnormal [None]
  - Suicide attempt [None]
  - Hypersensitivity [None]

NARRATIVE: CASE EVENT DATE: 20160309
